FAERS Safety Report 18438062 (Version 1)
Quarter: 2020Q4

REPORT INFORMATION
  Report Type: Spontaneous
  Country: US (occurrence: US)
  Receive Date: 20201028
  Receipt Date: 20201028
  Transmission Date: 20210114
  Serious: No
  Sender: FDA-Public Use
  Company Number: US-SA-2020SA298537

PATIENT

DRUGS (1)
  1. LANTUS [Suspect]
     Active Substance: INSULIN GLARGINE
     Indication: TYPE 2 DIABETES MELLITUS
     Dosage: SUPPOSE TO TAKE 20 UNITS AT NIGHT AND 10 IN THE MORNING BUT SHE GIVES HER 6 UNITS IN THE MORNING
     Route: 065

REACTIONS (4)
  - Intentional product use issue [Unknown]
  - Blood glucose decreased [Unknown]
  - Inappropriate schedule of product administration [Unknown]
  - Product storage error [Unknown]
